FAERS Safety Report 10790955 (Version 3)
Quarter: 2015Q2

REPORT INFORMATION
  Report Type: Report from Study
  Country: CA (occurrence: CA)
  Receive Date: 20150212
  Receipt Date: 20150427
  Transmission Date: 20150821
  Serious: Yes (Hospitalization, Other)
  Sender: FDA-Public Use
  Company Number: CA-ABBVIE-15K-028-1345679-00

PATIENT
  Age: 80 Year
  Sex: Male

DRUGS (1)
  1. HUMIRA [Suspect]
     Active Substance: ADALIMUMAB
     Indication: RHEUMATOID ARTHRITIS
     Route: 058
     Dates: start: 20090505

REACTIONS (3)
  - Fall [Recovered/Resolved]
  - Pulmonary oedema [Not Recovered/Not Resolved]
  - Empyema [Not Recovered/Not Resolved]

NARRATIVE: CASE EVENT DATE: 201502
